FAERS Safety Report 25642933 (Version 2)
Quarter: 2025Q3

REPORT INFORMATION
  Report Type: Spontaneous
  Country: JP (occurrence: JP)
  Receive Date: 20250805
  Receipt Date: 20250902
  Transmission Date: 20251021
  Serious: Yes (Hospitalization, Other)
  Sender: ROCHE
  Company Number: JP-CHUGAI-2025020550

PATIENT
  Age: 72 Year
  Sex: Female
  Weight: 41 kg

DRUGS (6)
  1. ACTEMRA [Suspect]
     Active Substance: TOCILIZUMAB
     Indication: Rheumatoid arthritis
     Dosage: 162 MILLIGRAM, ONCE/2WEEKS
     Route: 058
     Dates: start: 202108
  2. PROGRAF [Concomitant]
     Active Substance: TACROLIMUS
     Route: 065
  3. SARPOGRELATE HYDROCHLORIDE [Concomitant]
     Active Substance: SARPOGRELATE HYDROCHLORIDE
     Route: 065
  4. REVATIO [Concomitant]
     Active Substance: SILDENAFIL CITRATE
     Route: 065
  5. OFEV [Concomitant]
     Active Substance: NINTEDANIB
     Route: 065
  6. LEVOFLOXACIN [Concomitant]
     Active Substance: LEVOFLOXACIN

REACTIONS (2)
  - Interleukin level increased [Recovered/Resolved]
  - Pleurisy bacterial [Recovered/Resolved]

NARRATIVE: CASE EVENT DATE: 20250608
